FAERS Safety Report 10064263 (Version 2)
Quarter: 2014Q2

REPORT INFORMATION
  Report Type: Spontaneous
  Country: US (occurrence: US)
  Receive Date: 20140408
  Receipt Date: 20140423
  Transmission Date: 20141212
  Serious: Yes (Other)
  Sender: FDA-Public Use
  Company Number: US-AMGEN-USASP2014024413

PATIENT
  Age: 41 Year
  Sex: Female

DRUGS (1)
  1. ENBREL [Suspect]
     Indication: RHEUMATOID ARTHRITIS
     Dosage: 50 MG, QWK
     Route: 065
     Dates: start: 20140320, end: 20140410

REACTIONS (4)
  - Rheumatoid arthritis [Recovered/Resolved]
  - Erythema [Not Recovered/Not Resolved]
  - Body temperature fluctuation [Recovered/Resolved]
  - Muscle spasms [Recovered/Resolved]
